FAERS Safety Report 11520006 (Version 1)
Quarter: 2015Q3

REPORT INFORMATION
  Report Type: Spontaneous
  Country: US (occurrence: None)
  Receive Date: 20150917
  Receipt Date: 20150917
  Transmission Date: 20151125
  Serious: Yes (Other)
  Sender: FDA-Public Use
  Company Number: None

PATIENT
  Age: 34 Year
  Sex: Female

DRUGS (1)
  1. ENTECAVIR 0.5MG TEVA PHARMACEUTICALS [Suspect]
     Active Substance: ENTECAVIR
     Indication: ACUTE HEPATITIS B
     Route: 048
     Dates: start: 20150722

REACTIONS (3)
  - Fatigue [None]
  - Product substitution issue [None]
  - Condition aggravated [None]

NARRATIVE: CASE EVENT DATE: 201509
